FAERS Safety Report 19573463 (Version 1)
Quarter: 2021Q3

REPORT INFORMATION
  Report Type: Spontaneous
  Country: ES (occurrence: ES)
  Receive Date: 20210717
  Receipt Date: 20210717
  Transmission Date: 20211014
  Serious: Yes (Disabling, Other)
  Sender: FDA-Public Use
  Company Number: ES-AUROBINDO-09-AUR-10105

PATIENT
  Age: 54 Year
  Sex: Male

DRUGS (14)
  1. VORICONAZOLE. [Suspect]
     Active Substance: VORICONAZOLE
     Indication: INFECTION PROPHYLAXIS
     Dosage: 200 MILLIGRAM, TWO TIMES A DAY
     Route: 048
  2. RISPERIDONE. [Interacting]
     Active Substance: RISPERIDONE
     Indication: CONFUSIONAL STATE
  3. CICLOSPORIN [Interacting]
     Active Substance: CYCLOSPORINE
     Indication: GRAFT VERSUS HOST DISEASE
     Dosage: .5 MG,TWO TIMES A DAY,
     Route: 042
  4. ENALAPRIL [Concomitant]
     Active Substance: ENALAPRIL
     Indication: MYOCARDIAL INFARCTION
     Dosage: 5 MILLIGRAM, ONCE A DAY
     Route: 065
  5. TEICOPLANIN [Concomitant]
     Active Substance: TEICOPLANIN
     Indication: STOMATITIS
     Dosage: 400 MILLIGRAM, TWO TIMES A DAY
     Route: 042
  6. MEROPENEM. [Concomitant]
     Active Substance: MEROPENEM
     Indication: STOMATITIS
     Dosage: 1 GRAM, 3 TIMES A DAY
     Route: 042
  7. CICLOSPORIN [Interacting]
     Active Substance: CYCLOSPORINE
     Dosage: 1.5 MILLIGRAM, TWO TIMES A DAY
     Route: 042
  8. PENTAMIDINE [Suspect]
     Active Substance: PENTAMIDINE
     Indication: INFECTION PROPHYLAXIS
     Dosage: 300 MILLIGRAM
  9. ATENOLOL. [Concomitant]
     Active Substance: ATENOLOL
     Indication: MYOCARDIAL INFARCTION
     Dosage: 25 MILLIGRAM, ONCE A DAY
     Route: 065
  10. METHOTREXATE. [Concomitant]
     Active Substance: METHOTREXATE
     Indication: GRAFT VERSUS HOST DISEASE
     Dosage: 15 MILLIGRAM/SQ. METER
     Route: 042
  11. METHOTREXATE. [Concomitant]
     Active Substance: METHOTREXATE
     Dosage: 10 MILLIGRAM/SQ. METER
     Route: 042
  12. ACICLOVIR [Suspect]
     Active Substance: ACYCLOVIR
     Indication: INFECTION PROPHYLAXIS
     Dosage: 250 MILLIGRAM, TWO TIMES A DAY
     Route: 042
  13. SIMVASTATIN. [Suspect]
     Active Substance: SIMVASTATIN
     Indication: MYOCARDIAL INFARCTION
     Dosage: 40 MILLIGRAM, ONCE A DAY
     Route: 065
  14. RISPERIDONE. [Interacting]
     Active Substance: RISPERIDONE
     Indication: HALLUCINATION
     Dosage: 1 MILLIGRAM, ONCE A DAY
     Route: 048

REACTIONS (10)
  - Hallucination, auditory [Recovered/Resolved]
  - Acute kidney injury [Recovered/Resolved]
  - Acute myeloid leukaemia [Recovered/Resolved]
  - Hallucination, visual [Recovered/Resolved]
  - Myalgia [Recovered/Resolved]
  - Rhabdomyolysis [Recovered/Resolved]
  - Drug interaction [Recovered/Resolved]
  - Confusional state [Recovered/Resolved]
  - Hallucination [Recovered/Resolved]
  - Muscular weakness [Recovered/Resolved]

NARRATIVE: CASE EVENT DATE: 200609
